FAERS Safety Report 8236298-1 (Version None)
Quarter: 2012Q1

REPORT INFORMATION
  Report Type: 
  Country: None (occurrence: None)
  Receive Date: 20120327
  Receipt Date: 20120321
  Transmission Date: 20120608
  Serious: Yes (Hospitalization)
  Sender: FDA-Public Use
  Company Number: DE-AMGEN-DEUSP2012013060

PATIENT
  Age: 83 Year
  Sex: Female
  Weight: 56 kg

DRUGS (6)
  1. FENTANYL [Suspect]
     Dosage: 100 UNK, UNK
  2. ASPIRIN [Concomitant]
     Dosage: 100 UNK, UNK
  3. MOVICOL                            /01625101/ [Concomitant]
     Dosage: UNK
     Dates: start: 20090101
  4. TORSEMIDE [Concomitant]
     Dosage: 10 UNK, UNK
  5. PROLIA [Suspect]
     Indication: OSTEOPOROSIS POSTMENOPAUSAL
     Dosage: 60 MG, UNK
     Route: 058
     Dates: start: 20120125
  6. VOTUM                              /01635402/ [Concomitant]
     Dosage: 20 UNK, UNK

REACTIONS (4)
  - ABDOMINAL DISCOMFORT [None]
  - NAUSEA [None]
  - GASTRITIS [None]
  - CONSTIPATION [None]
